FAERS Safety Report 18873222 (Version 1)
Quarter: 2021Q1

REPORT INFORMATION
  Report Type: Spontaneous
  Country: IN (occurrence: IN)
  Receive Date: 20210210
  Receipt Date: 20210210
  Transmission Date: 20210420
  Serious: Yes (Hospitalization, Other)
  Sender: FDA-Public Use
  Company Number: IN-ACCORD-217125

PATIENT
  Age: 48 Year
  Sex: Female

DRUGS (1)
  1. CISPLATIN. [Suspect]
     Active Substance: CISPLATIN
     Indication: OVARIAN CANCER STAGE III
     Route: 033

REACTIONS (3)
  - Postoperative wound infection [Recovered/Resolved]
  - Enterocutaneous fistula [Recovered/Resolved]
  - Oedema [Recovered/Resolved]
